FAERS Safety Report 17193623 (Version 3)
Quarter: 2020Q1

REPORT INFORMATION
  Report Type: Report from Study
  Country: CA (occurrence: CA)
  Receive Date: 20191223
  Receipt Date: 20200310
  Transmission Date: 20200409
  Serious: Yes (Other)
  Sender: FDA-Public Use
  Company Number: CA-JNJFOC-20191227178

PATIENT
  Age: 27 Year
  Sex: Male
  Weight: 55.5 kg

DRUGS (5)
  1. ACETA [Concomitant]
     Indication: PREMEDICATION
     Route: 048
  2. SOLU-CORTEF [Concomitant]
     Active Substance: HYDROCORTISONE SODIUM SUCCINATE
     Indication: PREMEDICATION
     Route: 042
  3. REMICADE [Suspect]
     Active Substance: INFLIXIMAB
     Indication: CROHN^S DISEASE
     Dosage: PATIENT RECEIVED 10 REMICADE TREATMENTS FROM //2011 TO //2012.
     Route: 042
     Dates: start: 2011, end: 2012
  4. REMICADE [Suspect]
     Active Substance: INFLIXIMAB
     Dosage: PATIENT RECEIVED LAST DOSE ON 13/DEC/2019
     Route: 042
     Dates: start: 20191127
  5. BENADRYL [Concomitant]
     Active Substance: DIPHENHYDRAMINE HYDROCHLORIDE
     Indication: PREMEDICATION
     Route: 048

REACTIONS (11)
  - Diarrhoea [Unknown]
  - Abdominal pain [Unknown]
  - Off label use [Unknown]
  - Vomiting [Unknown]
  - Bowel movement irregularity [Unknown]
  - Hypoaesthesia oral [Unknown]
  - Nausea [Unknown]
  - Infusion related reaction [Unknown]
  - Diarrhoea [Unknown]
  - Abdominal pain [Unknown]
  - Product use issue [Unknown]

NARRATIVE: CASE EVENT DATE: 2019
